FAERS Safety Report 10079255 (Version 1)
Quarter: 2014Q2

REPORT INFORMATION
  Report Type: Spontaneous
  Country: US (occurrence: None)
  Receive Date: 20140414
  Receipt Date: 20140414
  Transmission Date: 20141212
  Serious: Yes (Life-Threatening, Hospitalization, Disabling, Other)
  Sender: FDA-Public Use
  Company Number: None

PATIENT
  Age: 43 Year
  Sex: Female
  Weight: 55.79 kg

DRUGS (1)
  1. HYDROCORTISONE [Suspect]
     Indication: ADDISON^S DISEASE
     Dosage: 10 MG AM; 5MG AT 2 PM, TWICE DAILY, TAKEN BY MOUTH
     Route: 048
     Dates: start: 20140108, end: 20140402

REACTIONS (10)
  - Chest pain [None]
  - Tachycardia [None]
  - Hypotension [None]
  - Dizziness [None]
  - Nausea [None]
  - Abdominal pain upper [None]
  - Headache [None]
  - Fatigue [None]
  - Muscle spasms [None]
  - Product quality issue [None]
